FAERS Safety Report 21439908 (Version 1)
Quarter: 2022Q4

REPORT INFORMATION
  Report Type: Spontaneous
  Country: US (occurrence: US)
  Receive Date: 20221011
  Receipt Date: 20221011
  Transmission Date: 20230112
  Serious: No
  Sender: FDA-Public Use
  Company Number: US-BAYER-2022A139760

PATIENT
  Sex: Female

DRUGS (2)
  1. CLIMARA PRO [Suspect]
     Active Substance: ESTRADIOL\LEVONORGESTREL
     Dosage: 0.045/0.015 MG
     Route: 062
  2. TEGADERM FOAM ADHESIVE [Concomitant]

REACTIONS (3)
  - Drug ineffective [None]
  - Device adhesion issue [None]
  - Wrong technique in product usage process [None]
